FAERS Safety Report 23755304 (Version 1)
Quarter: 2024Q2

REPORT INFORMATION
  Report Type: Spontaneous
  Country: US (occurrence: US)
  Receive Date: 20240418
  Receipt Date: 20240418
  Transmission Date: 20240717
  Serious: No
  Sender: FDA-Public Use
  Company Number: US-002147023-NVSC2023US204022

PATIENT
  Sex: Male

DRUGS (1)
  1. AZOPT [Suspect]
     Active Substance: BRINZOLAMIDE
     Indication: Product used for unknown indication
     Dosage: (1% STERILE/10 ML), BID (, IN THE MORNING AND IN THE EVENING)
     Route: 065

REACTIONS (2)
  - Eye pain [Unknown]
  - Therapeutic product effect delayed [Unknown]
